FAERS Safety Report 8062721-1 (Version None)
Quarter: 2012Q1

REPORT INFORMATION
  Report Type: 
  Country: None (occurrence: None)
  Receive Date: 20120123
  Receipt Date: 20120117
  Transmission Date: 20120608
  Serious: Yes (Other)
  Sender: FDA-Public Use
  Company Number: BR-SANOFI-AVENTIS-2012SA003621

PATIENT
  Age: 79 Year
  Sex: Male
  Weight: 95 kg

DRUGS (8)
  1. APIDRA SOLOSTAR [Suspect]
     Indication: TYPE 2 DIABETES MELLITUS
     Dosage: ACCORDING TO CARBOHYDRATE COUNTING
     Route: 058
     Dates: start: 19970101
  2. INDAPEN [Concomitant]
     Indication: BLOOD PRESSURE
     Route: 048
     Dates: start: 20020101
  3. SOLOSTAR [Suspect]
     Indication: DEVICE THERAPY
     Dates: start: 19970101
  4. LANTUS [Concomitant]
     Dates: start: 19920101
  5. DIOVAN [Concomitant]
     Indication: BLOOD PRESSURE
     Route: 048
     Dates: start: 20020101
  6. LERCANIDIPINE [Concomitant]
     Indication: BLOOD PRESSURE
     Route: 048
     Dates: start: 20110101
  7. SIMVASTATIN [Concomitant]
     Route: 048
     Dates: start: 19970101
  8. ACETYLSALICYLIC ACID SRT [Concomitant]
     Indication: ANTICOAGULANT THERAPY
     Route: 048
     Dates: start: 19970101

REACTIONS (2)
  - VISUAL IMPAIRMENT [None]
  - RETINAL VASCULAR THROMBOSIS [None]
